FAERS Safety Report 7883635-3 (Version None)
Quarter: 2011Q4

REPORT INFORMATION
  Report Type: 
  Country: None (occurrence: None)
  Receive Date: 20111102
  Receipt Date: 20111024
  Transmission Date: 20120403
  Serious: Yes (Death, Hospitalization)
  Sender: FDA-Public Use
  Company Number: JP-AMGEN-JPNCT2011053920

PATIENT
  Age: 72 Year
  Sex: Male
  Weight: 69 kg

DRUGS (8)
  1. OXALIPLATIN [Suspect]
     Dosage: 100 MG, Q2WK
     Route: 041
     Dates: start: 20110915, end: 20110915
  2. MINOCYCLINE HCL [Concomitant]
     Indication: PROPHYLAXIS
     Dosage: 100 MG, BID
     Route: 065
     Dates: start: 20110916, end: 20110925
  3. LEVOLEUCOVORIN CALCIUM [Suspect]
     Dosage: 300 MG, Q2WK
     Route: 041
     Dates: start: 20110915, end: 20110915
  4. PANITUMUMAB [Suspect]
     Indication: COLORECTAL CANCER
     Dosage: 400 MG, Q2WK
     Route: 041
     Dates: start: 20110915, end: 20110915
  5. FLUOROURACIL [Suspect]
     Dosage: 3500 MG, Q2WK
     Route: 041
     Dates: start: 20110915, end: 20110915
  6. LEVOLEUCOVORIN CALCIUM [Suspect]
     Indication: COLORECTAL CANCER
     Dosage: 300 MG, Q2WK
     Route: 041
     Dates: start: 20090511
  7. OXALIPLATIN [Suspect]
     Indication: COLORECTAL CANCER
     Dosage: 100 MG, Q2WK
     Route: 041
     Dates: start: 20090511
  8. FLUOROURACIL [Suspect]
     Indication: COLORECTAL CANCER
     Dosage: 3500 MG, Q2WK
     Route: 041
     Dates: start: 20090511

REACTIONS (3)
  - INFUSION RELATED REACTION [None]
  - URTICARIA [None]
  - INTERSTITIAL LUNG DISEASE [None]
